FAERS Safety Report 9225819 (Version 3)
Quarter: 2013Q2

REPORT INFORMATION
  Report Type: Spontaneous
  Country: JP (occurrence: JP)
  Receive Date: 20130411
  Receipt Date: 20130508
  Transmission Date: 20140414
  Serious: Yes (Hospitalization, Disabling, Other)
  Sender: FDA-Public Use
  Company Number: JP-ELI_LILLY_AND_COMPANY-JP201304000851

PATIENT
  Age: 96 Year
  Sex: Female
  Weight: 41.8 kg

DRUGS (4)
  1. EVISTA [Suspect]
     Indication: OSTEOPOROSIS
     Dosage: 60 MG, QD
     Route: 048
  2. DIOVAN [Concomitant]
     Dosage: 40 MG, QD
     Route: 048
  3. PLATIBIT [Concomitant]
     Dosage: 0.25 UG, QD
     Route: 048
  4. MAGNESIUM OXIDE [Concomitant]
     Dosage: 2 G, UNK
     Route: 048

REACTIONS (5)
  - Cerebral infarction [Recovered/Resolved with Sequelae]
  - Urinary tract infection [Recovered/Resolved]
  - Sepsis [Recovered/Resolved]
  - Stress cardiomyopathy [Recovering/Resolving]
  - Off label use [Unknown]
